FAERS Safety Report 21387669 (Version 1)
Quarter: 2022Q3

REPORT INFORMATION
  Report Type: Spontaneous
  Country: US (occurrence: None)
  Receive Date: 20220928
  Receipt Date: 20220928
  Transmission Date: 20221027
  Serious: No
  Sender: FDA-Public Use
  Company Number: 2022A321553

PATIENT
  Age: 59 Year
  Sex: Male
  Weight: 152 kg

DRUGS (1)
  1. FASENRA [Suspect]
     Active Substance: BENRALIZUMAB
     Indication: Asthma
     Route: 058
     Dates: start: 2022

REACTIONS (4)
  - Abdominal distension [Not Recovered/Not Resolved]
  - Product dose omission issue [Unknown]
  - Incorrect dose administered by product [Unknown]
  - Device leakage [Unknown]

NARRATIVE: CASE EVENT DATE: 20220101
